FAERS Safety Report 9686969 (Version 3)
Quarter: 2014Q1

REPORT INFORMATION
  Report Type: Spontaneous
  Country: IT (occurrence: IT)
  Receive Date: 20131113
  Receipt Date: 20140102
  Transmission Date: 20141002
  Serious: Yes (Hospitalization, Other)
  Sender: FDA-Public Use
  Company Number: IT-PFIZER INC-2013321658

PATIENT
  Age: 40 Year
  Sex: Female

DRUGS (5)
  1. ALPRAZOLAM [Suspect]
     Dosage: UNK
     Dates: start: 20130917
  2. VENLAFAXINE HCL [Suspect]
     Dosage: UNK
     Dates: start: 20130917
  3. CARBOLITHIUM [Suspect]
     Dosage: 150 MG, UNK
     Dates: start: 20130917
  4. BUPROPION HYDROCHLORIDE [Suspect]
     Dosage: UNK
     Dates: start: 20130917
  5. VALPROATE SODIUM [Suspect]
     Dosage: UNK
     Dates: start: 20130917

REACTIONS (8)
  - Agitation [Recovering/Resolving]
  - Sopor [Recovering/Resolving]
  - Confusional state [Recovering/Resolving]
  - Drug abuse [Recovering/Resolving]
  - Somnolence [Recovering/Resolving]
  - Alanine aminotransferase increased [Unknown]
  - Aspartate aminotransferase increased [Unknown]
  - Blood creatine phosphokinase increased [Unknown]
